FAERS Safety Report 8356342-0 (Version None)
Quarter: 2012Q2

REPORT INFORMATION
  Report Type: 
  Country: None (occurrence: None)
  Receive Date: 20120514
  Receipt Date: 20120511
  Transmission Date: 20120825
  Serious: Yes (Disabling)
  Sender: FDA-Public Use
  Company Number: DE-SANOFI-AVENTIS-2012SA033414

PATIENT
  Sex: Male

DRUGS (5)
  1. METOPROLOL TARTRATE [Concomitant]
     Route: 048
  2. PRAVASTATIN [Concomitant]
     Route: 048
  3. LERCANIDIPINE [Concomitant]
     Route: 048
  4. MULTAQ [Suspect]
     Indication: ATRIAL FIBRILLATION
     Route: 048
     Dates: start: 20100429, end: 20110419
  5. MARCUMAR [Concomitant]
     Route: 048

REACTIONS (3)
  - POLYNEUROPATHY [None]
  - VISUAL IMPAIRMENT [None]
  - HYPOAESTHESIA [None]
